FAERS Safety Report 15158093 (Version 2)
Quarter: 2018Q3

REPORT INFORMATION
  Report Type: Report from Study
  Country: US (occurrence: US)
  Receive Date: 20180718
  Receipt Date: 20180731
  Transmission Date: 20181010
  Serious: Yes (Other)
  Sender: FDA-Public Use
  Company Number: US-ASTELLAS-2018US031885

PATIENT
  Sex: Male

DRUGS (1)
  1. ERLOTINIB [Suspect]
     Active Substance: ERLOTINIB
     Indication: LUNG NEOPLASM MALIGNANT
     Route: 065
     Dates: start: 20160625

REACTIONS (7)
  - Trichiasis [Unknown]
  - Onychoclasis [Unknown]
  - Corneal oedema [Unknown]
  - Visual impairment [Unknown]
  - Drug effect decreased [Unknown]
  - Skin exfoliation [Unknown]
  - Diarrhoea [Unknown]
